FAERS Safety Report 6250200-3 (Version None)
Quarter: 2009Q2

REPORT INFORMATION
  Report Type: 
  Country: None (occurrence: None)
  Receive Date: 20090626
  Receipt Date: 20090108
  Transmission Date: 20091009
  Serious: Yes (Other)
  Sender: FDA-Public Use
  Company Number: 001090

PATIENT
  Sex: Female

DRUGS (7)
  1. OMEPRAZOLE [Suspect]
     Indication: HIATUS HERNIA
     Dosage: 20 MG ORAL
     Route: 048
  2. SERETIDE /01434201/ (SERETIDE) (NOT SPECIFIED) [Suspect]
     Indication: ASTHMA
     Dosage: 2 X2 PUFFS 250 MCG NASAL
     Route: 045
     Dates: start: 20040101
  3. AMLODIPINE [Suspect]
     Indication: HYPERTENSION
     Dosage: 5 MG ORAL
     Route: 048
  4. VENTOLIN [Suspect]
     Indication: ASTHMA
     Dosage: 2 DF PRN, 2 PUFFS AS NEEDED
  5. SINGULAIR [Suspect]
     Indication: ASTHMA
     Dosage: 10 MG, 10 MG AT NIGHT ORAL
     Route: 048
  6. TRIAMCINOLONE [Concomitant]
  7. DIHYDROCODEINE BITARTRATE INJ [Concomitant]

REACTIONS (3)
  - ASTHMA [None]
  - CONDITION AGGRAVATED [None]
  - RHINITIS [None]
